FAERS Safety Report 9370768 (Version 6)
Quarter: 2013Q3

REPORT INFORMATION
  Report Type: Spontaneous
  Country: JP (occurrence: JP)
  Receive Date: 20130626
  Receipt Date: 20130830
  Transmission Date: 20140515
  Serious: Yes (Death, Other)
  Sender: FDA-Public Use
  Company Number: JP-PFIZER INC-2013190266

PATIENT
  Age: 85 Year
  Sex: Male
  Weight: 37.5 kg

DRUGS (15)
  1. LYRICA [Suspect]
     Indication: NEURALGIA
     Dosage: 75 MG, ONCE
     Route: 048
     Dates: start: 20130617, end: 20130617
  2. BENZALIN [Interacting]
     Indication: INSOMNIA
     Dosage: 10 MG, 1X/DAY
     Route: 048
     Dates: start: 20130615, end: 20130617
  3. AMIODARONE [Concomitant]
     Indication: ARRHYTHMIA
     Dosage: 100 MG, 1X/DAY
     Route: 048
     Dates: start: 20121220
  4. AMIODARONE [Concomitant]
     Indication: CARDIAC FAILURE
  5. ARTIST [Concomitant]
     Indication: CARDIAC FAILURE
     Dosage: 2.5 MG, 2X/DAY
     Route: 048
     Dates: start: 20121220
  6. HARNAL [Concomitant]
     Indication: BENIGN PROSTATIC HYPERPLASIA
     Dosage: 0.2 MG, 1X/DAY
     Route: 048
     Dates: start: 20121228
  7. ZOLPIDEM TARTRATE [Concomitant]
     Indication: INSOMNIA
     Dosage: 10 MG, 1X/DAY
     Route: 048
     Dates: start: 20121220, end: 20130615
  8. FUROSEMIDE [Concomitant]
     Indication: POLYURIA
     Dosage: 20 MG, 2X/DAY
     Route: 048
     Dates: start: 20121220
  9. LAC B [Concomitant]
     Dosage: 1 G, 3X/DAY
     Route: 048
     Dates: start: 20130403, end: 20130605
  10. KALIMATE [Concomitant]
     Indication: HYPERKALAEMIA
     Dosage: 5 G, 3X/DAY
     Route: 048
     Dates: start: 20130522, end: 20130529
  11. ALOSITOL [Concomitant]
     Indication: HYPERURICAEMIA
     Dosage: 100 MG, 2X/DAY
     Route: 048
     Dates: start: 20130529
  12. APORASNON [Concomitant]
     Indication: POLYURIA
     Dosage: 25 MG, 2X/DAY
     Route: 048
     Dates: start: 20121220
  13. SENNARIDE [Concomitant]
     Indication: CONSTIPATION
     Dosage: 24 MG, 1X/DAY
     Route: 048
     Dates: start: 20130608, end: 20130613
  14. RINGEREAZE [Concomitant]
     Indication: INFLAMMATION
     Dosage: 60 MG, AS NEEDED
     Route: 048
     Dates: start: 20130529, end: 20130616
  15. CRAVIT [Concomitant]
     Dosage: 500 MG, 1X/DAY
     Route: 048
     Dates: start: 20130527, end: 20130531

REACTIONS (4)
  - Arrhythmia [Fatal]
  - Drug interaction [Recovered/Resolved]
  - Loss of consciousness [Recovered/Resolved]
  - Chills [Unknown]
